FAERS Safety Report 11275522 (Version 1)
Quarter: 2015Q3

REPORT INFORMATION
  Report Type: Spontaneous
  Country: US (occurrence: US)
  Receive Date: 20150716
  Receipt Date: 20150716
  Transmission Date: 20151125
  Serious: Yes (Other)
  Sender: FDA-Public Use
  Company Number: US-BAYER-2015-379035

PATIENT
  Age: 22 Year
  Sex: Female

DRUGS (2)
  1. MIRENA [Suspect]
     Active Substance: LEVONORGESTREL
     Indication: CONTRACEPTION
     Dosage: 20 MCG/24HR, CONT
     Route: 015
     Dates: start: 20150327
  2. MIRENA [Suspect]
     Active Substance: LEVONORGESTREL
     Indication: VON WILLEBRAND^S DISEASE

REACTIONS (4)
  - Device difficult to use [None]
  - Abdominal pain [None]
  - Dyspareunia [None]
  - Embedded device [None]

NARRATIVE: CASE EVENT DATE: 20150623
